FAERS Safety Report 11047313 (Version 1)
Quarter: 2015Q2

REPORT INFORMATION
  Report Type: Spontaneous
  Country: US (occurrence: US)
  Receive Date: 20150420
  Receipt Date: 20150420
  Transmission Date: 20150821
  Serious: Yes (Other)
  Sender: FDA-Public Use
  Company Number: US-009507513-1504USA007411

PATIENT
  Sex: Male

DRUGS (2)
  1. DULERA [Suspect]
     Active Substance: FORMOTEROL FUMARATE DIHYDRATE\MOMETASONE FUROATE
     Dosage: UNK
     Route: 055
  2. DULERA [Suspect]
     Active Substance: FORMOTEROL FUMARATE DIHYDRATE\MOMETASONE FUROATE
     Dosage: 200MCG/5MCG,UNK
     Route: 055

REACTIONS (10)
  - Fungal infection [Unknown]
  - Cardiac disorder [Unknown]
  - Adverse event [Unknown]
  - Cardiac operation [Unknown]
  - Dyspnoea [Unknown]
  - Tongue discolouration [Unknown]
  - Oral candidiasis [Unknown]
  - Cough [Unknown]
  - Drug dose omission [Unknown]
  - Product quality issue [Unknown]
